FAERS Safety Report 6843793-6 (Version None)
Quarter: 2010Q3

REPORT INFORMATION
  Report Type: 
  Country: None (occurrence: None)
  Receive Date: 20100715
  Receipt Date: 20100701
  Transmission Date: 20110219
  Serious: Yes (Other)
  Sender: FDA-Public Use
  Company Number: PHHY2010SI43273

PATIENT
  Age: 60 Year
  Sex: Female

DRUGS (8)
  1. ALISKIREN ALI+TAB+HT [Suspect]
     Dosage: 150 MG
  2. PRENESSA [Suspect]
     Dosage: UNK
     Dates: start: 20091009
  3. RAWEL [Suspect]
     Dosage: 1.25 MG DAILY
     Dates: start: 20091009
  4. AMLODIPINE [Suspect]
     Dosage: UNK
     Dates: start: 20091009
  5. LEVOTHYROXINE SODIUM [Concomitant]
     Indication: HYPOTHYROIDISM
     Dosage: 25 MG
  6. PREDUCTAL [Concomitant]
     Indication: ISCHAEMIA
     Dosage: 2 X 1 TABLET
     Route: 048
  7. ASPIRIN [Concomitant]
     Indication: ISCHAEMIA
     Dosage: 100 MG
  8. ATORVASTATIN [Concomitant]
     Indication: ISCHAEMIA
     Dosage: 40 MG

REACTIONS (3)
  - BLOOD CREATININE INCREASED [None]
  - BLOOD GLUCOSE INCREASED [None]
  - GLYCOSYLATED HAEMOGLOBIN INCREASED [None]
